FAERS Safety Report 25527412 (Version 4)
Quarter: 2025Q4

REPORT INFORMATION
  Report Type: Report from Study
  Country: PK (occurrence: PK)
  Receive Date: 20250708
  Receipt Date: 20251015
  Transmission Date: 20260118
  Serious: Yes (Other)
  Sender: ROCHE
  Company Number: PK-ROCHE-10000328270

PATIENT
  Age: 70 Year
  Sex: Female
  Weight: 53 kg

DRUGS (2)
  1. AVASTIN [Suspect]
     Active Substance: BEVACIZUMAB
     Indication: Ovarian cancer
     Route: 042
     Dates: start: 20250616
  2. AVASTIN [Suspect]
     Active Substance: BEVACIZUMAB
     Dosage: 3 WEEK
     Route: 042
     Dates: start: 20250616

REACTIONS (3)
  - Metastasis [Unknown]
  - Disease recurrence [Unknown]
  - Underdose [Unknown]

NARRATIVE: CASE EVENT DATE: 20250616
